FAERS Safety Report 9169115 (Version 1)
Quarter: 2013Q1

REPORT INFORMATION
  Report Type: Report from Study
  Country: NO (occurrence: NO)
  Receive Date: 20130318
  Receipt Date: 20130318
  Transmission Date: 20140127
  Serious: Yes (Death)
  Sender: FDA-Public Use
  Company Number: NO-GLAXOSMITHKLINE-B0767602A

PATIENT
  Age: 46 Year
  Sex: Female

DRUGS (3)
  1. LAMOTRIGINE [Suspect]
     Indication: EPILEPSY
     Route: 065
  2. PHENYTOIN [Suspect]
     Indication: EPILEPSY
     Route: 065
  3. PROMETHAZINE [Concomitant]
     Route: 065

REACTIONS (1)
  - Sudden unexplained death in epilepsy [Fatal]
